FAERS Safety Report 25585423 (Version 2)
Quarter: 2025Q3

REPORT INFORMATION
  Report Type: Spontaneous
  Country: US (occurrence: US)
  Receive Date: 20250721
  Receipt Date: 20250725
  Transmission Date: 20251021
  Serious: Yes (Hospitalization)
  Sender: MYLAN
  Company Number: US-MYLANLABS-2025M1059361

PATIENT
  Age: 40 Year
  Sex: Female
  Weight: 111.13 kg

DRUGS (8)
  1. GEODON [Suspect]
     Active Substance: ZIPRASIDONE HYDROCHLORIDE\ZIPRASIDONE MESYLATE
     Indication: Schizophrenia
     Dosage: UNK, BID (TWICE A DAY, 80 MG IN THE MORNING AND 160 MG AT NIGHT)
  2. GEODON [Suspect]
     Active Substance: ZIPRASIDONE HYDROCHLORIDE\ZIPRASIDONE MESYLATE
     Dosage: UNK, BID (TWICE A DAY, 80 MG IN THE MORNING AND 160 MG AT NIGHT)
     Route: 065
  3. GEODON [Suspect]
     Active Substance: ZIPRASIDONE HYDROCHLORIDE\ZIPRASIDONE MESYLATE
     Dosage: UNK, BID (TWICE A DAY, 80 MG IN THE MORNING AND 160 MG AT NIGHT)
     Route: 065
  4. GEODON [Suspect]
     Active Substance: ZIPRASIDONE HYDROCHLORIDE\ZIPRASIDONE MESYLATE
     Dosage: UNK, BID (TWICE A DAY, 80 MG IN THE MORNING AND 160 MG AT NIGHT)
  5. RISPERIDONE [Concomitant]
     Active Substance: RISPERIDONE
     Indication: Schizophrenia
     Dosage: 8 MILLIGRAM, QD (ONCE A DAY)
  6. RISPERIDONE [Concomitant]
     Active Substance: RISPERIDONE
     Dosage: 8 MILLIGRAM, QD (ONCE A DAY)
     Route: 065
  7. RISPERIDONE [Concomitant]
     Active Substance: RISPERIDONE
     Dosage: 8 MILLIGRAM, QD (ONCE A DAY)
     Route: 065
  8. RISPERIDONE [Concomitant]
     Active Substance: RISPERIDONE
     Dosage: 8 MILLIGRAM, QD (ONCE A DAY)

REACTIONS (4)
  - Hospitalisation [Unknown]
  - Tremor [Unknown]
  - Incorrect route of product administration [Unknown]
  - Off label use [Unknown]

NARRATIVE: CASE EVENT DATE: 20250711
